FAERS Safety Report 24185968 (Version 2)
Quarter: 2024Q3

REPORT INFORMATION
  Report Type: Report from Study
  Country: US (occurrence: US)
  Receive Date: 20240807
  Receipt Date: 20240830
  Transmission Date: 20241017
  Serious: Yes (Other)
  Sender: ABBVIE
  Company Number: US-ABBVIE-5856579

PATIENT
  Sex: Female
  Weight: 54 kg

DRUGS (9)
  1. HUMIRA [Suspect]
     Active Substance: ADALIMUMAB
     Indication: Crohn^s disease
     Dosage: FORM STRENGTH: 40 MILLIGRAM
     Route: 058
     Dates: start: 20010101, end: 20240810
  2. HUMIRA [Suspect]
     Active Substance: ADALIMUMAB
     Route: 058
  3. SODIUM BICARBONATE [Concomitant]
     Active Substance: SODIUM BICARBONATE
     Indication: Renal lithiasis prophylaxis
  4. CARVEDILOL [Concomitant]
     Active Substance: CARVEDILOL
     Indication: Blood pressure abnormal
  5. ALENDRONATE SODIUM [Concomitant]
     Active Substance: ALENDRONATE SODIUM
     Indication: Osteopenia
  6. LOPERAMIDE [Concomitant]
     Active Substance: LOPERAMIDE
     Indication: Diarrhoea
  7. IRON [Concomitant]
     Active Substance: IRON
     Indication: Mineral supplementation
  8. AMLODIPINE [Concomitant]
     Active Substance: AMLODIPINE BESYLATE
     Indication: Blood pressure abnormal
  9. POTASSIUM [Concomitant]
     Active Substance: POTASSIUM
     Indication: Renal lithiasis prophylaxis

REACTIONS (8)
  - Ileectomy [Not Recovered/Not Resolved]
  - Abdominal distension [Recovered/Resolved]
  - Gastrointestinal pain [Unknown]
  - Ileal operation [Recovered/Resolved]
  - Gastrointestinal inflammation [Not Recovered/Not Resolved]
  - Ileal stenosis [Unknown]
  - Crohn^s disease [Recovered/Resolved]
  - Ileal operation [Unknown]

NARRATIVE: CASE EVENT DATE: 20020101
